FAERS Safety Report 5803455-0 (Version None)
Quarter: 2008Q3

REPORT INFORMATION
  Report Type: 
  Country: None (occurrence: None)
  Receive Date: 20080708
  Receipt Date: 20080627
  Transmission Date: 20090109
  Serious: Yes (Hospitalization)
  Sender: FDA-Public Use
  Company Number: ES-ROCHE-573158

PATIENT
  Age: 34 Year
  Sex: Male

DRUGS (5)
  1. VALIUM [Suspect]
     Indication: RENAL COLIC
     Route: 030
     Dates: start: 20071128, end: 20071128
  2. AUGMENTINE PLUS [Suspect]
     Indication: RENAL COLIC
     Dosage: FORM: TABLET PROLONGED RELEASE. STRENGTH: AMOXICILLIN/CLAVULANIC ACID: 1000MG:62.5
     Route: 048
     Dates: start: 20071128, end: 20071128
  3. NOLOTIL [Suspect]
     Indication: RENAL COLIC
     Route: 030
     Dates: start: 20071128, end: 20071128
  4. FEXOFENADINE HCL [Suspect]
     Indication: RENAL COLIC
     Dosage: FORM: FILM COATED TABLET
     Route: 048
     Dates: start: 20071128, end: 20071128
  5. LEVOTHYROXINE SODIUM [Concomitant]
     Indication: HYPOTHYROIDISM
     Route: 048
     Dates: start: 20070901

REACTIONS (1)
  - HEPATITIS ACUTE [None]
